FAERS Safety Report 5409030-4 (Version None)
Quarter: 2007Q3

REPORT INFORMATION
  Report Type: 
  Country: None (occurrence: None)
  Receive Date: 20070806
  Receipt Date: 20070720
  Transmission Date: 20080115
  Serious: Yes (Hospitalization)
  Sender: FDA-Public Use
  Company Number: 17121

PATIENT
  Sex: Male
  Weight: 63.9 kg

DRUGS (3)
  1. PENTOSTATIN [Suspect]
     Indication: GRAFT VERSUS HOST DISEASE
  2. CSA [Concomitant]
  3. PREDNISONE TAB [Concomitant]

REACTIONS (1)
  - PAIN [None]
